FAERS Safety Report 9559852 (Version 2)
Quarter: 2014Q1

REPORT INFORMATION
  Report Type: Spontaneous
  Country: DE (occurrence: DE)
  Receive Date: 20130927
  Receipt Date: 20140303
  Transmission Date: 20141002
  Serious: Yes (Other)
  Sender: FDA-Public Use
  Company Number: DE-B.I. PHARMACEUTICALS,INC./RIDGEFIELD-2013-BI-29606DE

PATIENT
  Sex: Female

DRUGS (6)
  1. BUSCOPAN [Suspect]
     Indication: PRODUCT USED FOR UNKNOWN INDICATION
     Route: 065
  2. BUSCOPAN [Suspect]
     Route: 065
  3. DULCOLAX [Suspect]
     Indication: DYSPEPSIA
     Route: 065
  4. DULCOLAX [Suspect]
     Route: 065
  5. ANALGESICS [Concomitant]
     Indication: PAIN
     Route: 065
  6. ANTIHORMONE [Concomitant]
     Route: 065

REACTIONS (7)
  - Breast cancer [Recovered/Resolved]
  - Back pain [Unknown]
  - Abdominal pain upper [Unknown]
  - Dyspepsia [Unknown]
  - Bone pain [Unknown]
  - Burning sensation [Unknown]
  - Product quality issue [Unknown]
